FAERS Safety Report 18856571 (Version 4)
Quarter: 2022Q2

REPORT INFORMATION
  Report Type: Report from Study
  Country: US (occurrence: US)
  Receive Date: 20210207
  Receipt Date: 20220616
  Transmission Date: 20220720
  Serious: Yes (Other)
  Sender: FDA-Public Use
  Company Number: US-TAKEDA-US202021449

PATIENT
  Sex: Female

DRUGS (1)
  1. HUMAN IMMUNOGLOBULIN G [Suspect]
     Active Substance: HUMAN IMMUNOGLOBULIN G
     Indication: Primary immunodeficiency syndrome
     Dosage: UNK
     Route: 042

REACTIONS (11)
  - Autoimmune disorder [Unknown]
  - Breast mass [Recovering/Resolving]
  - Illness [Unknown]
  - Asthma [Unknown]
  - Contusion [Unknown]
  - Cough [Unknown]
  - Malaise [Unknown]
  - Headache [Unknown]
  - Device difficult to use [Unknown]
  - Device infusion issue [Unknown]
  - Incorrect drug administration rate [Unknown]
